FAERS Safety Report 20919538 (Version 3)
Quarter: 2022Q3

REPORT INFORMATION
  Report Type: Report from Study
  Country: AU (occurrence: AU)
  Receive Date: 20220606
  Receipt Date: 20220714
  Transmission Date: 20221027
  Serious: Yes (Other)
  Sender: FDA-Public Use
  Company Number: AU-GLAXOSMITHKLINE-AU2022APC085744

PATIENT

DRUGS (1)
  1. BELANTAMAB MAFODOTIN [Suspect]
     Active Substance: BELANTAMAB MAFODOTIN
     Indication: Plasma cell myeloma
     Dosage: 3.4 MG/KG OR 2.5 MG/KG, EVERY 3 WEEKS
     Route: 042
     Dates: start: 20210416, end: 20220408

REACTIONS (1)
  - Plasma cell myeloma [Not Recovered/Not Resolved]
